FAERS Safety Report 25945660 (Version 1)
Quarter: 2025Q4

REPORT INFORMATION
  Report Type: Spontaneous
  Country: US (occurrence: US)
  Receive Date: 20251021
  Receipt Date: 20251021
  Transmission Date: 20260117
  Serious: Yes (Other)
  Sender: VITRUVIAS THERAPEUTICS
  Company Number: US-Vitruvias Therapeutics-2187009

PATIENT
  Sex: Male

DRUGS (1)
  1. PROPAFENONE HYDROCHLORIDE [Suspect]
     Active Substance: PROPAFENONE HYDROCHLORIDE

REACTIONS (14)
  - Blood pressure increased [Recovered/Resolved]
  - Arthralgia [Unknown]
  - Abdominal discomfort [Unknown]
  - Fatigue [Unknown]
  - Sleep disorder [Unknown]
  - Discomfort [Unknown]
  - Product substitution issue [Unknown]
  - Product quality issue [Unknown]
  - Pain [Unknown]
  - Asthenia [Unknown]
  - Lethargy [Unknown]
  - Impaired work ability [Unknown]
  - Eye pain [Unknown]
  - Dizziness [Unknown]
